FAERS Safety Report 23800885 (Version 1)
Quarter: 2024Q2

REPORT INFORMATION
  Report Type: Spontaneous
  Country: US (occurrence: None)
  Receive Date: 20240429
  Receipt Date: 20240429
  Transmission Date: 20240716
  Serious: No
  Sender: FDA-Public Use
  Company Number: None

PATIENT
  Sex: Female

DRUGS (1)
  1. ORITAVANCIN [Suspect]
     Active Substance: ORITAVANCIN
     Dosage: 800 MG WEEKLY INTRAVENOUS DRIP
     Route: 041

REACTIONS (4)
  - Sepsis [None]
  - Staphylococcal bacteraemia [None]
  - Heart rate increased [None]
  - Infusion related reaction [None]

NARRATIVE: CASE EVENT DATE: 20240327
